FAERS Safety Report 18570785 (Version 1)
Quarter: 2020Q4

REPORT INFORMATION
  Report Type: Spontaneous
  Country: US (occurrence: US)
  Receive Date: 20201202
  Receipt Date: 20201202
  Transmission Date: 20210114
  Serious: Yes (Other)
  Sender: FDA-Public Use
  Company Number: US-AMGEN-USASL2020183082

PATIENT

DRUGS (1)
  1. XGEVA [Suspect]
     Active Substance: DENOSUMAB
     Indication: BREAST CANCER METASTATIC
     Dosage: UNK UNK, QMO
     Route: 065

REACTIONS (6)
  - Myalgia [Unknown]
  - Arthralgia [Unknown]
  - Back pain [Unknown]
  - Feeling abnormal [Unknown]
  - Bone pain [Unknown]
  - Cancer pain [Unknown]

NARRATIVE: CASE EVENT DATE: 20201105
